FAERS Safety Report 7982296 (Version 10)
Quarter: 2013Q1

REPORT INFORMATION
  Report Type: Spontaneous
  Country: US (occurrence: US)
  Receive Date: 20110609
  Receipt Date: 20130221
  Transmission Date: 20140127
  Serious: Yes (Hospitalization)
  Sender: FDA-Public Use
  Company Number: US-BIOGENIDEC-2011BI019625

PATIENT
  Age: 23 Year
  Sex: Male
  Weight: 92 kg

DRUGS (17)
  1. TYSABRI [Suspect]
     Indication: MULTIPLE SCLEROSIS
     Route: 042
     Dates: start: 20071112, end: 20110511
  2. KEPPRA XR [Concomitant]
     Indication: LARYNGOSPASM
     Route: 048
     Dates: start: 20110503
  3. KEPPRA XR [Concomitant]
     Indication: TREMOR
     Route: 048
     Dates: start: 20110503
  4. DILAUDID [Concomitant]
     Indication: PAIN
     Route: 048
  5. AMLODIPINE [Concomitant]
     Indication: HYPERTENSION
     Route: 048
  6. EPLERENONE [Concomitant]
     Route: 048
  7. CANDESARTAN [Concomitant]
     Indication: HYPERTENSION
     Route: 048
  8. LABETALOL [Concomitant]
     Indication: HYPERTENSION
     Route: 048
  9. CHOLECALCIFEROL [Concomitant]
     Route: 048
  10. MINOXIDIL [Concomitant]
     Indication: HYPERTENSION
     Route: 048
  11. GUANFACINE [Concomitant]
     Route: 048
  12. CLONIDINE [Concomitant]
     Route: 048
  13. DIAZEPAM [Concomitant]
     Indication: LARYNGOSPASM
     Route: 048
  14. GABAPENTIN [Concomitant]
     Indication: HICCUPS
     Route: 048
  15. GABAPENTIN [Concomitant]
     Indication: LARYNGOSPASM
     Route: 048
  16. GABAPENTIN [Concomitant]
     Indication: HICCUPS
     Route: 048
     Dates: end: 201105
  17. GABAPENTIN [Concomitant]
     Indication: LARYNGOSPASM
     Route: 048
     Dates: end: 201105

REACTIONS (1)
  - Progressive multifocal leukoencephalopathy [Not Recovered/Not Resolved]
